FAERS Safety Report 17546450 (Version 2)
Quarter: 2020Q2

REPORT INFORMATION
  Report Type: Spontaneous
  Country: BE (occurrence: BE)
  Receive Date: 20200316
  Receipt Date: 20200408
  Transmission Date: 20200713
  Serious: Yes (Other)
  Sender: FDA-Public Use
  Company Number: BE-009507513-2003BEL005253

PATIENT
  Age: 73 Year
  Sex: Male

DRUGS (4)
  1. COVERSYL PLUS (INDAPAMIDE (+) PERINDOPRIL ARGININE) [Concomitant]
     Dosage: UNK
  2. KEYTRUDA [Suspect]
     Active Substance: PEMBROLIZUMAB
     Indication: NON-SMALL CELL LUNG CANCER STAGE IV
     Dosage: 200 MILLIGRAM, Q3W
     Route: 042
     Dates: start: 20171121, end: 20191105
  3. CARDIOASPIRINE [Concomitant]
     Active Substance: ASPIRIN
     Dosage: UNK
  4. SIMVASTATIN. [Concomitant]
     Active Substance: SIMVASTATIN
     Dosage: UNK

REACTIONS (3)
  - Hypothalamic pituitary adrenal axis suppression [Not Recovered/Not Resolved]
  - Pemphigoid [Recovering/Resolving]
  - Hypothyroidism [Not Recovered/Not Resolved]

NARRATIVE: CASE EVENT DATE: 20181018
